FAERS Safety Report 14817903 (Version 1)
Quarter: 2018Q2

REPORT INFORMATION
  Report Type: Report from Study
  Country: None (occurrence: NL)
  Receive Date: 20180427
  Receipt Date: 20180427
  Transmission Date: 20180711
  Serious: Yes (Hospitalization)
  Sender: FDA-Public Use
  Company Number: NL-ABBVIE-18K-114-2306580-00

PATIENT
  Age: 73 Year
  Sex: Male

DRUGS (4)
  1. DUODOPA [Suspect]
     Active Substance: CARBIDOPA\LEVODOPA
     Indication: PARKINSON^S DISEASE
     Dosage: MD 9?CD 3.7?ED 3
     Route: 050
     Dates: start: 20161015
  2. CLOZAPINE. [Concomitant]
     Active Substance: CLOZAPINE
     Indication: PRODUCT USED FOR UNKNOWN INDICATION
  3. SYMMETREL [Suspect]
     Active Substance: AMANTADINE HYDROCHLORIDE
     Indication: PRODUCT USED FOR UNKNOWN INDICATION
     Route: 065
  4. SYMMETREL [Suspect]
     Active Substance: AMANTADINE HYDROCHLORIDE
     Route: 065

REACTIONS (7)
  - Dyskinesia [Not Recovered/Not Resolved]
  - Hallucination [Unknown]
  - Restlessness [Not Recovered/Not Resolved]
  - Drug effect variable [Unknown]
  - Orthostatic hypertension [Unknown]
  - Hyperkinesia [Unknown]
  - Fall [Unknown]

NARRATIVE: CASE EVENT DATE: 20180323
